FAERS Safety Report 10476573 (Version 2)
Quarter: 2014Q4

REPORT INFORMATION
  Report Type: Spontaneous
  Country: US (occurrence: None)
  Receive Date: 20140923
  Receipt Date: 20141023
  Transmission Date: 20150528
  Serious: Yes (Hospitalization, Other)
  Sender: FDA-Public Use
  Company Number: AEGR000733

PATIENT
  Age: 53 Year
  Sex: Female
  Weight: 53.1 kg

DRUGS (1)
  1. JUXTAPID [Suspect]
     Active Substance: LOMITAPIDE MESYLATE
     Indication: TYPE IIA HYPERLIPIDAEMIA
     Route: 048
     Dates: start: 20140620, end: 20140929

REACTIONS (5)
  - Liver function test abnormal [None]
  - Haemoglobin decreased [None]
  - Muscle spasms [None]
  - Dizziness [None]
  - Gastrointestinal haemorrhage [None]

NARRATIVE: CASE EVENT DATE: 2014
